FAERS Safety Report 14375525 (Version 1)
Quarter: 2018Q1

REPORT INFORMATION
  Report Type: Spontaneous
  Country: US (occurrence: US)
  Receive Date: 20180110
  Receipt Date: 20180110
  Transmission Date: 20180509
  Serious: Yes (Hospitalization, Disabling)
  Sender: FDA-Public Use
  Company Number: None

PATIENT
  Age: 63 Year
  Sex: Female
  Weight: 99.34 kg

DRUGS (13)
  1. COPAXONE [Suspect]
     Active Substance: GLATIRAMER ACETATE
     Indication: MULTIPLE SCLEROSIS
     Dosage: DOSE - 1 INJECTION?ROUTE - INJECTION
     Dates: start: 20170923, end: 20171130
  2. ACETAMINOPHEN. [Concomitant]
     Active Substance: ACETAMINOPHEN
  3. LOSARTAN POTASSIUM. [Concomitant]
     Active Substance: LOSARTAN POTASSIUM
  4. VITAMIN D3 [Concomitant]
     Active Substance: CHOLECALCIFEROL
  5. TRAMADOL. [Concomitant]
     Active Substance: TRAMADOL
  6. GABA [Concomitant]
     Active Substance: HOMEOPATHICS
  7. IBUPROFEN. [Concomitant]
     Active Substance: IBUPROFEN
  8. VOLTAREN 1% TRANSDERMAL GEL [Concomitant]
  9. BACLOFEN. [Concomitant]
     Active Substance: BACLOFEN
  10. FERROUS SULFATE. [Suspect]
     Active Substance: FERROUS SULFATE
  11. OMEPRAZOLE. [Concomitant]
     Active Substance: OMEPRAZOLE
  12. FUROSEMIDE. [Concomitant]
     Active Substance: FUROSEMIDE
  13. GABAPENTIN. [Concomitant]
     Active Substance: GABAPENTIN

REACTIONS (5)
  - Visual impairment [None]
  - Swelling [None]
  - Pain [None]
  - Peripheral swelling [None]
  - Mass [None]

NARRATIVE: CASE EVENT DATE: 201712
